FAERS Safety Report 4611490-3 (Version None)
Quarter: 2005Q1

REPORT INFORMATION
  Report Type: 
  Country: None (occurrence: None)
  Receive Date: 20050315
  Receipt Date: 20050315
  Transmission Date: 20050727
  Serious: Yes (Death, Life-Threatening, Hospitalization)
  Sender: FDA-Public Use
  Company Number: None

PATIENT
  Age: 59 Year
  Sex: Female

DRUGS (2)
  1. GEMCITABINE [Suspect]
     Indication: BREAST CANCER
  2. CHEMOTHERAPY [Concomitant]

REACTIONS (2)
  - LUNG INFILTRATION [None]
  - PNEUMONITIS [None]
